FAERS Safety Report 19902058 (Version 2)
Quarter: 2021Q4

REPORT INFORMATION
  Report Type: Spontaneous
  Country: US (occurrence: US)
  Receive Date: 20210929
  Receipt Date: 20211005
  Transmission Date: 20220303
  Serious: No
  Sender: FDA-Public Use
  Company Number: US-UNITED THERAPEUTICS-UNT-2021-019322

PATIENT
  Age: 46 Year
  Sex: Female
  Weight: 65.76 kg

DRUGS (2)
  1. TYVASO [Suspect]
     Active Substance: TREPROSTINIL
     Indication: Pulmonary arterial hypertension
     Dosage: UNK
     Dates: start: 20210902
  2. TYVASO [Suspect]
     Active Substance: TREPROSTINIL
     Dosage: 18-54 ?G, QID
     Dates: start: 202109, end: 20210930

REACTIONS (3)
  - Chest discomfort [Unknown]
  - Palpitations [Unknown]
  - Dyspnoea [Unknown]

NARRATIVE: CASE EVENT DATE: 20210901
